FAERS Safety Report 14786720 (Version 3)
Quarter: 2018Q2

REPORT INFORMATION
  Report Type: Spontaneous
  Country: US (occurrence: US)
  Receive Date: 20180420
  Receipt Date: 20180619
  Transmission Date: 20180711
  Serious: Yes (Death, Hospitalization)
  Sender: FDA-Public Use
  Company Number: US-ACTELION-A-NJ2018-170923

PATIENT
  Age: 65 Year
  Sex: Female
  Weight: 73.16 kg

DRUGS (1)
  1. VELETRI [Suspect]
     Active Substance: EPOPROSTENOL
     Indication: PULMONARY ARTERIAL HYPERTENSION
     Dosage: UNK
     Route: 042
     Dates: end: 20180410

REACTIONS (4)
  - Sepsis [Fatal]
  - Therapy non-responder [Unknown]
  - Pulmonary arterial hypertension [Fatal]
  - Disease progression [Fatal]
